FAERS Safety Report 16626014 (Version 1)
Quarter: 2019Q3

REPORT INFORMATION
  Report Type: Spontaneous
  Country: DE (occurrence: DE)
  Receive Date: 20190724
  Receipt Date: 20190724
  Transmission Date: 20191004
  Serious: Yes (Death, Hospitalization)
  Sender: FDA-Public Use
  Company Number: DE-PFIZER INC-2019310320

PATIENT
  Age: 58 Year
  Sex: Male
  Weight: 63 kg

DRUGS (15)
  1. CARBOPLATIN. [Suspect]
     Active Substance: CARBOPLATIN
     Dosage: 367.90 MG, UNK (367.90 MG ACCORDING TO SCHEME , LAST ON 22NOV2017)
     Route: 042
     Dates: end: 20171122
  2. FENTANYL. [Concomitant]
     Active Substance: FENTANYL
     Dosage: 25 UG, UNK (EVERY 3 DAYS)
     Route: 062
  3. ANAGRELIDE. [Concomitant]
     Active Substance: ANAGRELIDE HYDROCHLORIDE
     Dosage: 0.5 MG, 3X/DAY (0.5 MG, 1-1-1-0)
     Route: 048
  4. PEMETREXED. [Suspect]
     Active Substance: PEMETREXED
     Dosage: 920 MG, UNK (920 MG, ACCORDING TO SCHEME, LAST ON 22NOV2017)
     Route: 042
     Dates: end: 20171122
  5. GABAPENTIN. [Concomitant]
     Active Substance: GABAPENTIN
     Dosage: 100 MG, 3X/DAY (100 MG, 1-1-1-0)
     Route: 048
  6. CALCIMAGON D3 [Concomitant]
     Active Substance: CALCIUM\CHOLECALCIFEROL
     Dosage: 500MG/400 I.E.
     Route: 048
  7. LOPERAMID [Concomitant]
     Active Substance: LOPERAMIDE
     Dosage: 2 MG, AS NEEDED
     Route: 048
  8. ULTIBRO BREEZHALER [Concomitant]
     Active Substance: GLYCOPYRRONIUM\INDACATEROL
     Dosage: 85?G/43 ?G, 85
     Route: 055
  9. HYDROXYCARBAMID [Concomitant]
     Active Substance: HYDROXYUREA
     Dosage: 500 MG, 2X/DAY (500 MG, 1-0-1-0)
     Route: 048
  10. METAMIZOL [Concomitant]
     Active Substance: METAMIZOLE SODIUM
     Dosage: 500 MG, UNK  (500 MG, 2-2-2-2)
     Route: 048
  11. ACETYLSALICYLIC ACID [Concomitant]
     Active Substance: ASPIRIN
     Dosage: 100 MG, 1X/DAY
     Route: 048
  12. CLEXANE [Concomitant]
     Active Substance: ENOXAPARIN SODIUM
     Dosage: 0.4 ML, 1X/DAY (0.4 ML, 0-0-1-0)
     Route: 058
  13. MIRTAZAPIN [Concomitant]
     Active Substance: MIRTAZAPINE
     Dosage: 15 MG, 1X/DAY (15 MG, 0-0-1-0)
     Route: 048
  14. PANTOPRAZOL [PANTOPRAZOLE] [Concomitant]
     Active Substance: PANTOPRAZOLE
     Dosage: 40 MG, 1X/DAY  (40 MG, 1-0-0-0)
     Route: 048
  15. FOLSAEURE [Concomitant]
     Active Substance: FOLIC ACID
     Dosage: 5 MG, 1X/DAY (5 MG, 1-0-0-0)
     Route: 048

REACTIONS (4)
  - General physical health deterioration [Unknown]
  - Diarrhoea [Unknown]
  - Fatigue [Unknown]
  - Weight decreased [Unknown]
